FAERS Safety Report 7739360-2 (Version None)
Quarter: 2011Q3

REPORT INFORMATION
  Report Type: 
  Country: None (occurrence: None)
  Receive Date: 20110909
  Receipt Date: 20110831
  Transmission Date: 20111222
  Serious: Yes (Other)
  Sender: FDA-Public Use
  Company Number: US-UCBSA-040452

PATIENT
  Sex: Female

DRUGS (1)
  1. CIMZIA [Suspect]
     Indication: CROHN'S DISEASE
     Route: 058
     Dates: start: 20080904

REACTIONS (4)
  - AGITATION [None]
  - DEPRESSION [None]
  - INCISIONAL HERNIA [None]
  - SELF ESTEEM DECREASED [None]
